FAERS Safety Report 4711957-3 (Version None)
Quarter: 2005Q2

REPORT INFORMATION
  Report Type: 
  Country: None (occurrence: None)
  Receive Date: 20050629
  Receipt Date: 20050421
  Transmission Date: 20051028
  Serious: No
  Sender: FDA-Public Use
  Company Number: 05P-163-0298191-00

PATIENT
  Age: 80 Year
  Sex: Female
  Weight: 63.05 kg

DRUGS (5)
  1. HUMIRA [Suspect]
     Indication: RHEUMATOID ARTHRITIS
     Dosage: 40 MG, 1 IN 2 WK, SUBCUTANEOUS
     Route: 058
     Dates: start: 20050316, end: 20050420
  2. ACETAMINOPHEN W/ CODEINE [Concomitant]
  3. FUROSEMIDE [Concomitant]
  4. NITRO-DUR [Concomitant]
  5. RABEPRAZOLE SODIUM [Concomitant]

REACTIONS (2)
  - FACIAL PAIN [None]
  - SWELLING FACE [None]
